FAERS Safety Report 4358643-X (Version None)
Quarter: 2004Q2

REPORT INFORMATION
  Report Type: 
  Country: None (occurrence: None)
  Receive Date: 20040513
  Receipt Date: 20040513
  Transmission Date: 20050107
  Serious: Yes (Hospitalization)
  Sender: FDA-Public Use
  Company Number: None

PATIENT
  Age: 48 Year
  Sex: Male
  Weight: 76.2043 kg

DRUGS (4)
  1. REMICADE [Suspect]
     Indication: RHEUMATOID ARTHRITIS
     Dosage: 300 MG IV Q 8 WK
     Route: 042
     Dates: start: 20010912, end: 20020410
  2. ARAVA [Suspect]
     Indication: RHEUMATOID ARTHRITIS
     Dosage: 20 MG PO QD
     Route: 048
     Dates: start: 19981001, end: 20020617
  3. ENBREL [Concomitant]
  4. VIOXX [Concomitant]

REACTIONS (13)
  - BIOPSY SITE UNSPECIFIED ABNORMAL [None]
  - BONE MARROW DISORDER [None]
  - CHILLS [None]
  - GRANULOMA [None]
  - INFLAMMATION [None]
  - LIVER FUNCTION TEST ABNORMAL [None]
  - LUNG INFILTRATION [None]
  - NECK MASS [None]
  - NECROSIS [None]
  - NIGHT SWEATS [None]
  - PYREXIA [None]
  - RASH [None]
  - TUBERCULIN TEST POSITIVE [None]
